FAERS Safety Report 17717954 (Version 22)
Quarter: 2022Q2

REPORT INFORMATION
  Report Type: Report from Study
  Country: CA (occurrence: CA)
  Receive Date: 20200428
  Receipt Date: 20220510
  Transmission Date: 20220720
  Serious: Yes (Hospitalization, Other)
  Sender: FDA-Public Use
  Company Number: PHHY2019CA044099

PATIENT
  Age: 47 Year
  Sex: Female

DRUGS (4)
  1. SANDOSTATIN LAR DEPOT [Suspect]
     Active Substance: OCTREOTIDE ACETATE
     Indication: Acromegaly
     Dosage: 20 MG, Q4W (EVERY 4 WEEKS)
     Route: 030
     Dates: start: 20050623, end: 20200716
  2. SANDOSTATIN LAR DEPOT [Suspect]
     Active Substance: OCTREOTIDE ACETATE
     Dosage: 30 MG, Q3W
     Route: 030
     Dates: start: 20200811
  3. SANDOSTATIN LAR DEPOT [Suspect]
     Active Substance: OCTREOTIDE ACETATE
  4. SOMAVERT [Concomitant]
     Active Substance: PEGVISOMANT
     Indication: Product used for unknown indication
     Dosage: UNK
     Route: 065

REACTIONS (14)
  - Adrenocortical insufficiency acute [Unknown]
  - Intestinal ischaemia [Unknown]
  - Hypertension [Unknown]
  - Abdominal pain [Unknown]
  - Blood pressure increased [Unknown]
  - Addison^s disease [Unknown]
  - Anaphylactic shock [Unknown]
  - Trigeminal neuralgia [Unknown]
  - Blood growth hormone abnormal [Unknown]
  - Swelling [Unknown]
  - Gait disturbance [Unknown]
  - Sciatica [Unknown]
  - Inappropriate schedule of product administration [Unknown]
  - Therapeutic response decreased [Unknown]

NARRATIVE: CASE EVENT DATE: 20051001
